FAERS Safety Report 6183412-8 (Version None)
Quarter: 2009Q2

REPORT INFORMATION
  Report Type: 
  Country: None (occurrence: None)
  Receive Date: 20090507
  Receipt Date: 20090501
  Transmission Date: 20091009
  Serious: Yes (Other)
  Sender: FDA-Public Use
  Company Number: US-MERCK-0905USA00607

PATIENT
  Age: 12 Year

DRUGS (4)
  1. DECADRON [Suspect]
     Indication: THROMBOCYTOPENIA
     Route: 065
  2. GLOBULIN, IMMUNE [Concomitant]
     Route: 065
  3. PREDNISONE [Concomitant]
     Route: 065
  4. [THERAPY UNSPECIFIED] [Concomitant]
     Route: 065

REACTIONS (2)
  - DRUG INEFFECTIVE [None]
  - THROMBOCYTOPENIA [None]
